FAERS Safety Report 14288757 (Version 5)
Quarter: 2018Q2

REPORT INFORMATION
  Report Type: Report from Study
  Country: None (occurrence: FI)
  Receive Date: 20171215
  Receipt Date: 20180521
  Transmission Date: 20180711
  Serious: Yes (Hospitalization)
  Sender: FDA-Public Use
  Company Number: FI-ABBVIE-17K-055-2193801-00

PATIENT
  Age: 76 Year
  Sex: Female

DRUGS (3)
  1. DUODOPA [Suspect]
     Active Substance: CARBIDOPA\LEVODOPA
     Route: 050
     Dates: start: 20171205
  2. DUODOPA [Suspect]
     Active Substance: CARBIDOPA\LEVODOPA
     Dosage: 16H TREATMENT
     Route: 050
     Dates: start: 20180201
  3. DUODOPA [Suspect]
     Active Substance: CARBIDOPA\LEVODOPA
     Indication: PARKINSON^S DISEASE
     Route: 050
     Dates: start: 20171128, end: 20171205

REACTIONS (7)
  - Incision site abscess [Unknown]
  - Wrong technique in device usage process [Unknown]
  - Complication of device insertion [Unknown]
  - Stoma site inflammation [Unknown]
  - Abdominal pain [Unknown]
  - Liver injury [Not Recovered/Not Resolved]
  - Medical device site injury [Not Recovered/Not Resolved]

NARRATIVE: CASE EVENT DATE: 2017
